FAERS Safety Report 18667640 (Version 3)
Quarter: 2021Q1

REPORT INFORMATION
  Report Type: Report from Study
  Country: DE (occurrence: DE)
  Receive Date: 20201228
  Receipt Date: 20210212
  Transmission Date: 20210419
  Serious: Yes (Hospitalization, Other)
  Sender: FDA-Public Use
  Company Number: DE-BRISTOL-MYERS SQUIBB COMPANY-BMS-2020-110193

PATIENT
  Age: 76 Year
  Sex: Male

DRUGS (16)
  1. NIVOLUMAB [Suspect]
     Active Substance: NIVOLUMAB
     Indication: RENAL CELL CARCINOMA
     Dosage: 280.5 MILLIGRAM, Q4WK
     Route: 042
     Dates: start: 20200819
  2. SIMVASTATIN. [Concomitant]
     Active Substance: SIMVASTATIN
     Indication: METABOLIC DISORDER
     Dosage: 40 MILLIGRAM
     Route: 065
  3. SPIRONOLACTON [Concomitant]
     Active Substance: SPIRONOLACTONE
     Indication: CEREBROVASCULAR DISORDER
  4. CANDESARTAN. [Concomitant]
     Active Substance: CANDESARTAN
     Indication: CEREBROVASCULAR DISORDER
     Dosage: 32 MILLIGRAM
     Route: 065
  5. SPIRONOLACTON [Concomitant]
     Active Substance: SPIRONOLACTONE
     Indication: CARDIOVASCULAR DISORDER
     Dosage: 25 MILLIGRAM
     Route: 065
  6. MOXONIDIN [Concomitant]
     Active Substance: MOXONIDINE
     Indication: CEREBROVASCULAR DISORDER
     Dosage: 0.6 MILLIGRAM
     Route: 065
  7. METOPROLOL. [Concomitant]
     Active Substance: METOPROLOL
     Indication: CARDIOVASCULAR DISORDER
     Dosage: 190 MILLIGRAM
     Route: 065
  8. LERCANIDIPINE [Concomitant]
     Active Substance: LERCANIDIPINE
     Indication: CEREBROVASCULAR DISORDER
     Dosage: 20 MILLIGRAM
     Route: 065
  9. JARDIANCE [Concomitant]
     Active Substance: EMPAGLIFLOZIN
     Indication: METABOLIC DISORDER
     Dosage: 10 MILLIGRAM
     Route: 065
  10. METOPROLOL. [Concomitant]
     Active Substance: METOPROLOL
     Indication: CEREBROVASCULAR DISORDER
  11. LERCANIDIPINE [Concomitant]
     Active Substance: LERCANIDIPINE
     Indication: CARDIOVASCULAR DISORDER
  12. METFORMIN [Concomitant]
     Active Substance: METFORMIN HYDROCHLORIDE
     Indication: METABOLIC DISORDER
     Dosage: 2000 MILLIGRAM
     Route: 065
  13. IPILIMUMAB [Suspect]
     Active Substance: IPILIMUMAB
     Indication: RENAL CELL CARCINOMA
     Dosage: 62 MILLIGRAM, Q4WK
     Route: 042
     Dates: start: 20200819
  14. MOXONIDIN [Concomitant]
     Active Substance: MOXONIDINE
     Indication: CARDIOVASCULAR DISORDER
  15. TORASEMID [Concomitant]
     Active Substance: TORSEMIDE
     Indication: METABOLIC DISORDER
     Dosage: 40 MILLIGRAM
     Route: 065
  16. CANDESARTAN. [Concomitant]
     Active Substance: CANDESARTAN
     Indication: CARDIOVASCULAR DISORDER

REACTIONS (3)
  - Femoral neck fracture [Recovered/Resolved]
  - Intentional product use issue [Unknown]
  - Fall [Unknown]

NARRATIVE: CASE EVENT DATE: 20201221
